FAERS Safety Report 15390113 (Version 1)
Quarter: 2018Q3

REPORT INFORMATION
  Report Type: Spontaneous
  Country: US (occurrence: US)
  Receive Date: 20180907
  Receipt Date: 20180907
  Transmission Date: 20181010
  Serious: Yes (Other)
  Sender: FDA-Public Use
  Company Number: None

PATIENT
  Age: 47 Year
  Sex: Female
  Weight: 60.3 kg

DRUGS (2)
  1. TOPRICIN FIBRO CREAM [Suspect]
     Active Substance: HOMEOPATHICS
     Indication: FIBROMYALGIA
     Dosage: ?          QUANTITY:1 DOLOP ON FINGERS;?
     Route: 061
     Dates: start: 20180802, end: 20180805
  2. MULTI VITAMIN [Concomitant]
     Active Substance: VITAMINS

REACTIONS (4)
  - Drug ineffective [None]
  - Product quality issue [None]
  - Skin irritation [None]
  - Pain [None]

NARRATIVE: CASE EVENT DATE: 20180803
